FAERS Safety Report 8523525-6 (Version None)
Quarter: 2012Q3

REPORT INFORMATION
  Report Type: 
  Country: None (occurrence: None)
  Receive Date: 20120720
  Receipt Date: 20120712
  Transmission Date: 20120928
  Serious: Yes (Hospitalization)
  Sender: FDA-Public Use
  Company Number: ZA-JNJFOC-20120706104

PATIENT
  Sex: Female
  Weight: 110 kg

DRUGS (2)
  1. REVELLEX [Suspect]
     Route: 042
     Dates: start: 20070309
  2. REVELLEX [Suspect]
     Indication: RHEUMATOID ARTHRITIS
     Route: 042
     Dates: start: 20111212

REACTIONS (1)
  - LUNG INFECTION [None]
